FAERS Safety Report 6183388-3 (Version None)
Quarter: 2009Q2

REPORT INFORMATION
  Report Type: 
  Country: None (occurrence: None)
  Receive Date: 20090507
  Receipt Date: 20090430
  Transmission Date: 20091009
  Serious: Yes (Hospitalization)
  Sender: FDA-Public Use
  Company Number: CA-ABBOTT-09P-028-0571158-00

PATIENT
  Sex: Male

DRUGS (6)
  1. LUPRON DEPOT [Suspect]
     Indication: PROSTATE CANCER
     Dates: start: 20061227
  2. APO-PRAVASTATINE [Concomitant]
     Indication: DRUG USE FOR UNKNOWN INDICATION
  3. LOSEC [Concomitant]
     Indication: DRUG USE FOR UNKNOWN INDICATION
  4. FLOMAX [Concomitant]
     Indication: DRUG USE FOR UNKNOWN INDICATION
  5. NORVASC [Concomitant]
     Indication: DRUG USE FOR UNKNOWN INDICATION
  6. APO-VISKIN [Concomitant]
     Indication: DRUG USE FOR UNKNOWN INDICATION

REACTIONS (2)
  - ASTHENIA [None]
  - GASTROENTERITIS [None]
